FAERS Safety Report 19401658 (Version 1)
Quarter: 2021Q2

REPORT INFORMATION
  Report Type: Spontaneous
  Country: FR (occurrence: FR)
  Receive Date: 20210611
  Receipt Date: 20210611
  Transmission Date: 20210717
  Serious: Yes (Death, Hospitalization)
  Sender: FDA-Public Use
  Company Number: FR-JNJFOC-20210613180

PATIENT
  Sex: Female

DRUGS (1)
  1. ERDAFITINIB. [Suspect]
     Active Substance: ERDAFITINIB
     Indication: PRODUCT USED FOR UNKNOWN INDICATION
     Dosage: THE TREATMENT WAS SUSPENDED FOR ONE WEEK IN MAR?2021 AND THEN STOPPED
     Route: 065
     Dates: start: 20201119

REACTIONS (3)
  - Death [Fatal]
  - Mucosal inflammation [Unknown]
  - Liver disorder [Recovered/Resolved]

NARRATIVE: CASE EVENT DATE: 20210320
